FAERS Safety Report 8467441-7 (Version None)
Quarter: 2012Q2

REPORT INFORMATION
  Report Type: 
  Country: None (occurrence: None)
  Receive Date: 20120626
  Receipt Date: 20120402
  Transmission Date: 20120825
  Serious: No
  Sender: FDA-Public Use
  Company Number: US-ASTRAZENECA-2012SE07672

PATIENT
  Age: 52 Year
  Sex: Female
  Weight: 95.5 kg

DRUGS (6)
  1. CAPRELSA [Suspect]
     Route: 048
  2. MULTI-VITAMINS [Concomitant]
  3. CALCIUM 500 + D [Concomitant]
  4. CAPRELSA [Suspect]
     Indication: THYROID CANCER
     Route: 048
  5. B COMPLEX ELX [Concomitant]
  6. LEVOTHYROXINE SODIUM [Concomitant]

REACTIONS (1)
  - HEPATIC ENZYME INCREASED [None]
